FAERS Safety Report 9869377 (Version 1)
Quarter: 2014Q1

REPORT INFORMATION
  Report Type: Spontaneous
  Country: IT (occurrence: IT)
  Receive Date: 20140205
  Receipt Date: 20140205
  Transmission Date: 20141002
  Serious: Yes (Other)
  Sender: FDA-Public Use
  Company Number: IT-JNJFOC-20140117298

PATIENT
  Age: 50 Year
  Sex: Female

DRUGS (2)
  1. TOPIRAMATE [Suspect]
     Indication: PAIN PROPHYLAXIS
     Route: 048
     Dates: start: 2012
  2. TOPIRAMATE [Suspect]
     Indication: PAIN PROPHYLAXIS
     Route: 048
     Dates: start: 201001

REACTIONS (4)
  - Granuloma annulare [Recovered/Resolved]
  - Drug withdrawal headache [Unknown]
  - Weight decreased [Recovered/Resolved]
  - Self-medication [Unknown]
